FAERS Safety Report 6423296-3 (Version None)
Quarter: 2009Q4

REPORT INFORMATION
  Report Type: 
  Country: None (occurrence: None)
  Receive Date: 20091028
  Receipt Date: 20091022
  Transmission Date: 20100525
  Serious: Yes (Death)
  Sender: FDA-Public Use
  Company Number: ADR47362009

PATIENT
  Age: 86 Year
  Sex: Female

DRUGS (2)
  1. RISPERIDONE [Suspect]
  2. ROPINIROLE HYDROCHLORIDE [Concomitant]

REACTIONS (1)
  - MEDICATION ERROR [None]
